FAERS Safety Report 9385899 (Version 2)
Quarter: 2013Q3

REPORT INFORMATION
  Report Type: Spontaneous
  Country: JP (occurrence: JP)
  Receive Date: 20130705
  Receipt Date: 20130815
  Transmission Date: 20140515
  Serious: Yes (Hospitalization, Other)
  Sender: FDA-Public Use
  Company Number: PHHY2013JP068300

PATIENT
  Age: 32 Year
  Sex: Female

DRUGS (8)
  1. DIOVAN [Suspect]
     Indication: HYPERTENSION
     Dosage: UNK UKN, UNK
     Route: 048
  2. DIOVAN [Suspect]
     Dosage: UNK UKN, UNK
     Route: 048
  3. NICARDIPINE [Suspect]
  4. METHYLDOPA [Suspect]
  5. LABETALOL [Suspect]
  6. NIFEDIPINE [Suspect]
  7. TANATRIL [Suspect]
     Indication: HYPERTENSION
     Dosage: UNK UKN, UNK
     Route: 048
  8. TANATRIL [Suspect]
     Dosage: UNK UKN, UNK
     Route: 048

REACTIONS (8)
  - Premature delivery [Unknown]
  - Umbilical cord vascular disorder [Unknown]
  - Renal impairment [Recovering/Resolving]
  - Blood creatinine increased [Recovering/Resolving]
  - Blood urea increased [Recovering/Resolving]
  - Platelet count decreased [Unknown]
  - Blood pressure increased [Unknown]
  - Maternal exposure during pregnancy [Recovered/Resolved]
